FAERS Safety Report 8433141 (Version 4)
Quarter: 2013Q3

REPORT INFORMATION
  Report Type: Spontaneous
  Country: US (occurrence: US)
  Receive Date: 20120229
  Receipt Date: 20130717
  Transmission Date: 20140515
  Serious: Yes (Life-Threatening, Hospitalization)
  Sender: FDA-Public Use
  Company Number: US-JNJFOC-20120210784

PATIENT
  Age: 10 Year
  Sex: Female
  Weight: 31.3 kg

DRUGS (3)
  1. CHILDREN^S MOTRIN IBUPROFEN SUSPENSION [Suspect]
     Indication: RASH
     Route: 048
  2. CHILDREN^S MOTRIN IBUPROFEN SUSPENSION [Suspect]
     Indication: FUNGAL INFECTION
     Route: 048
  3. CHILDREN^S MOTRIN IBUPROFEN SUSPENSION [Suspect]
     Indication: PYREXIA
     Route: 048
     Dates: start: 20030202

REACTIONS (3)
  - Stevens-Johnson syndrome [Not Recovered/Not Resolved]
  - Toxic epidermal necrolysis [Recovering/Resolving]
  - Viral infection [None]
